FAERS Safety Report 20370881 (Version 2)
Quarter: 2022Q1

REPORT INFORMATION
  Report Type: Report from Study
  Country: US (occurrence: US)
  Receive Date: 20220124
  Receipt Date: 20220331
  Transmission Date: 20220423
  Serious: Yes (Other)
  Sender: FDA-Public Use
  Company Number: US-GLAXOSMITHKLINE-US2021259769

PATIENT
  Age: 66 Year
  Sex: Female
  Weight: 63.502 kg

DRUGS (4)
  1. NIRAPARIB [Suspect]
     Active Substance: NIRAPARIB
     Indication: Ovarian cancer
     Dosage: 100 MG, BID
     Dates: start: 20211208
  2. NIRAPARIB [Suspect]
     Active Substance: NIRAPARIB
     Dosage: 200 MG, QD
  3. NIRAPARIB [Suspect]
     Active Substance: NIRAPARIB
     Dosage: 200 MG, QD
  4. TYLENOL [Concomitant]
     Active Substance: ACETAMINOPHEN
     Indication: Product used for unknown indication
     Dosage: 500 MG PRN

REACTIONS (9)
  - Kidney infection [Recovered/Resolved]
  - Bone pain [Recovering/Resolving]
  - Decreased appetite [Recovering/Resolving]
  - Nausea [Recovered/Resolved]
  - Insomnia [Recovering/Resolving]
  - Constipation [Recovered/Resolved]
  - Drug monitoring procedure not performed [Unknown]
  - Inappropriate schedule of product administration [Not Recovered/Not Resolved]
  - Product dose omission issue [Unknown]

NARRATIVE: CASE EVENT DATE: 20211201
